FAERS Safety Report 8078676-X (Version None)
Quarter: 2012Q1

REPORT INFORMATION
  Report Type: 
  Country: None (occurrence: None)
  Receive Date: 20120124
  Receipt Date: 20120102
  Transmission Date: 20120608
  Serious: Yes (Hospitalization)
  Sender: FDA-Public Use
  Company Number: ES-024945

PATIENT
  Age: 71 Year
  Sex: Male

DRUGS (6)
  1. ISOSORBIDE MONONITRATE [Concomitant]
  2. (CHLORAMBUCIL) [Suspect]
     Indication: CHRONIC LYMPHOCYTIC LEUKAEMIA
     Dosage: 126MG PER DAY, ORAL
     Route: 048
     Dates: start: 20110518, end: 20111007
  3. SIMVASTATIN [Concomitant]
  4. OMEPRAZOLE [Concomitant]
  5. (RITUXIMAB) [Suspect]
     Indication: CHRONIC LYMPHOCYTIC LEUKAEMIA
     Dosage: 933MG PER DAY INTRAVENOUS (NOT OTHERWISE SPECIFIED)
     Route: 042
     Dates: start: 20110518, end: 20111007
  6. ASPIRIN [Concomitant]

REACTIONS (6)
  - ASTHENIA [None]
  - VOMITING [None]
  - FEBRILE NEUTROPENIA [None]
  - MALAISE [None]
  - NAUSEA [None]
  - URINARY TRACT INFECTION STAPHYLOCOCCAL [None]
